FAERS Safety Report 7628624-9 (Version None)
Quarter: 2011Q3

REPORT INFORMATION
  Report Type: 
  Country: None (occurrence: None)
  Receive Date: 20110722
  Receipt Date: 20110713
  Transmission Date: 20111222
  Serious: Yes (Other)
  Sender: FDA-Public Use
  Company Number: US-PFIZER INC-2011160874

PATIENT
  Age: 15 Year
  Sex: Female

DRUGS (2)
  1. CABERGOLINE [Suspect]
     Dosage: 1 MG 3X WEEKLY
     Route: 048
  2. CABERGOLINE [Suspect]
     Indication: PITUITARY TUMOUR BENIGN
     Dosage: 0.5 MG, 2X/WEEK
     Route: 048

REACTIONS (5)
  - POLYCYSTIC OVARIES [None]
  - GALACTORRHOEA [None]
  - DRUG RESISTANCE [None]
  - VISUAL FIELD DEFECT [None]
  - HYPOTHYROIDISM [None]
